FAERS Safety Report 21759507 (Version 1)
Quarter: 2022Q4

REPORT INFORMATION
  Report Type: Spontaneous
  Country: US (occurrence: None)
  Receive Date: 20221220
  Receipt Date: 20221220
  Transmission Date: 20230113
  Serious: Yes (Hospitalization)
  Sender: FDA-Public Use
  Company Number: None

PATIENT
  Age: 52 Year
  Sex: Male
  Weight: 73.3 kg

DRUGS (3)
  1. CISPLATIN [Suspect]
     Active Substance: CISPLATIN
     Dates: end: 20211010
  2. IFOSFAMIDE [Suspect]
     Active Substance: IFOSFAMIDE
     Dates: end: 20211010
  3. TAXOL [Suspect]
     Active Substance: PACLITAXEL
     Dates: end: 20211008

REACTIONS (5)
  - Tumour haemorrhage [None]
  - Hypercalcaemia [None]
  - Thrombocytopenia [None]
  - Blood disorder [None]
  - Lymphatic disorder [None]

NARRATIVE: CASE EVENT DATE: 20211013
